FAERS Safety Report 14673596 (Version 5)
Quarter: 2018Q4

REPORT INFORMATION
  Report Type: Report from Study
  Country: DE (occurrence: DE)
  Receive Date: 20180323
  Receipt Date: 20181221
  Transmission Date: 20190204
  Serious: Yes (Hospitalization)
  Sender: FDA-Public Use
  Company Number: PHHO2018DE003639

PATIENT
  Age: 60 Year
  Sex: Female
  Weight: 74 kg

DRUGS (12)
  1. BUPRENORPHINE. [Concomitant]
     Active Substance: BUPRENORPHINE
     Indication: MUSCULOSKELETAL CHEST PAIN
     Dosage: 35 UG, UNK
     Route: 065
  2. ONDASETRON [Concomitant]
     Active Substance: ONDANSETRON
     Indication: NAUSEA
     Route: 065
  3. MACROGOL [Concomitant]
     Active Substance: POLYETHYLENE GLYCOLS
     Indication: PRODUCT USED FOR UNKNOWN INDICATION
     Route: 065
  4. MATRIFEN [Concomitant]
     Active Substance: FENTANYL
     Indication: PAIN
     Dosage: 50 MG, UNK
     Route: 065
     Dates: start: 20180213, end: 20180214
  5. NOVAMINSULFON [Concomitant]
     Active Substance: METAMIZOLE
     Indication: PAIN
     Dosage: 40 GGT
     Route: 065
     Dates: start: 20180213, end: 20180214
  6. LEE011 [Suspect]
     Active Substance: RIBOCICLIB
     Indication: BREAST CANCER
     Dosage: 600 MG, UNK
     Route: 048
     Dates: start: 20180221, end: 20180311
  7. ABSTRAL [Concomitant]
     Active Substance: FENTANYL CITRATE
     Indication: PAIN
     Dosage: 100 MG, UNK
     Route: 065
     Dates: start: 20180213, end: 20180214
  8. CGS 20267 [Suspect]
     Active Substance: LETROZOLE
     Indication: BREAST CANCER
     Dosage: 2.5 MG, UNK
     Route: 048
     Dates: start: 20180221, end: 20180311
  9. AMITRIPTYLINE [Concomitant]
     Active Substance: AMITRIPTYLINE
     Indication: SLEEP DISORDER
     Route: 065
  10. LEE011 [Suspect]
     Active Substance: RIBOCICLIB
     Dosage: 600 UNK, UNK
     Route: 048
     Dates: start: 20180405
  11. VENLAFAXIN [Concomitant]
     Active Substance: VENLAFAXINE HYDROCHLORIDE
     Indication: SLEEP DISORDER
     Dosage: 75 MG, UNK
     Route: 065
  12. VENLAFAXIN [Concomitant]
     Active Substance: VENLAFAXINE HYDROCHLORIDE
     Indication: ANXIETY

REACTIONS (3)
  - Nausea [Recovered/Resolved]
  - Polyneuropathy [Recovered/Resolved]
  - Dizziness [Recovered/Resolved]

NARRATIVE: CASE EVENT DATE: 20180312
